FAERS Safety Report 12416724 (Version 1)
Quarter: 2016Q2

REPORT INFORMATION
  Report Type: Spontaneous
  Country: US (occurrence: US)
  Receive Date: 20160530
  Receipt Date: 20160530
  Transmission Date: 20160815
  Serious: No
  Sender: FDA-Public Use
  Company Number: US-WEST-WARD PHARMACEUTICALS CORP.-US-H14001-16-00474

PATIENT
  Sex: Male
  Weight: 90.8 kg

DRUGS (1)
  1. TESTOSTERONE CYPIONATE. [Suspect]
     Active Substance: TESTOSTERONE CYPIONATE
     Indication: HYPOGONADISM
     Route: 030

REACTIONS (3)
  - Drug ineffective [Not Recovered/Not Resolved]
  - Night sweats [Recovered/Resolved]
  - Intentional product use issue [Not Recovered/Not Resolved]
